FAERS Safety Report 7450866-6 (Version None)
Quarter: 2011Q2

REPORT INFORMATION
  Report Type: 
  Country: None (occurrence: None)
  Receive Date: 20110502
  Receipt Date: 20110427
  Transmission Date: 20111010
  Serious: Yes (Hospitalization)
  Sender: FDA-Public Use
  Company Number: CA-AMGEN-CANSP2011022103

PATIENT
  Age: 73 Year
  Sex: Male

DRUGS (9)
  1. LYRICA [Concomitant]
  2. NEUPOGEN [Suspect]
     Indication: CHEMOTHERAPY
     Dosage: 300 A?G, PER CHEMO REGIM
     Route: 058
     Dates: start: 20100601, end: 20101101
  3. RITUXIMAB [Concomitant]
  4. MOTILIUM                           /00498201/ [Concomitant]
  5. DOXORUBICIN [Concomitant]
  6. VINCRISTINE [Concomitant]
  7. PREDNISONE [Concomitant]
     Dosage: 100 MG, PER CHEMO REGIM
  8. PREVACID [Concomitant]
     Dosage: 30 MG, UNK
  9. CYCLOPHOSPHAMIDE [Concomitant]

REACTIONS (1)
  - BODY TEMPERATURE INCREASED [None]
